FAERS Safety Report 13192651 (Version 1)
Quarter: 2017Q1

REPORT INFORMATION
  Report Type: Spontaneous
  Country: US (occurrence: US)
  Receive Date: 20170207
  Receipt Date: 20170207
  Transmission Date: 20170428
  Serious: Yes (Disabling)
  Sender: FDA-Public Use
  Company Number: None

PATIENT
  Age: 67 Year
  Sex: Female
  Weight: 82.56 kg

DRUGS (6)
  1. LOVASTATIN. [Concomitant]
     Active Substance: LOVASTATIN
  2. TEVETEN [Concomitant]
     Active Substance: EPROSARTAN MESYLATE
  3. ASPIRIN. [Concomitant]
     Active Substance: ASPIRIN
  4. RECLAST [Suspect]
     Active Substance: ZOLEDRONIC ACID
     Indication: OSTEOPOROSIS
     Dosage: ONCE A YEAR INFUSION
     Dates: start: 20160824
  5. HYDROCHLOROTHIAZIDE. [Concomitant]
     Active Substance: HYDROCHLOROTHIAZIDE
  6. KLOR-CON [Concomitant]
     Active Substance: POTASSIUM CHLORIDE

REACTIONS (22)
  - Arthralgia [None]
  - Pain [None]
  - Nightmare [None]
  - Facial pain [None]
  - Eye pruritus [None]
  - Photophobia [None]
  - Night sweats [None]
  - Headache [None]
  - Fatigue [None]
  - Dehydration [None]
  - Tooth loss [None]
  - Glaucoma [None]
  - Eye pain [None]
  - Bone pain [None]
  - Weight increased [None]
  - Pyrexia [None]
  - Chills [None]
  - Asthenia [None]
  - Influenza [None]
  - Pruritus [None]
  - Toothache [None]
  - Back pain [None]

NARRATIVE: CASE EVENT DATE: 20160824
